FAERS Safety Report 6882744-5 (Version None)
Quarter: 2010Q3

REPORT INFORMATION
  Report Type: 
  Country: None (occurrence: None)
  Receive Date: 20100729
  Receipt Date: 20100720
  Transmission Date: 20110219
  Serious: Yes (Disabling)
  Sender: FDA-Public Use
  Company Number: VE-ROCHE-716581

PATIENT
  Sex: Female
  Weight: 32 kg

DRUGS (4)
  1. XELODA [Suspect]
     Route: 048
     Dates: start: 20100301
  2. XELODA [Suspect]
     Route: 048
     Dates: start: 20100701, end: 20100709
  3. CISPLATIN [Concomitant]
  4. RECORMON [Concomitant]
     Dosage: DOSE: 30000UI

REACTIONS (2)
  - CONDITION AGGRAVATED [None]
  - STOMATITIS [None]
